FAERS Safety Report 13504039 (Version 1)
Quarter: 2017Q2

REPORT INFORMATION
  Report Type: Spontaneous
  Country: US (occurrence: US)
  Receive Date: 20170502
  Receipt Date: 20170502
  Transmission Date: 20170830
  Serious: No
  Sender: FDA-Public Use
  Company Number: US-AMGEN-USASP2017063495

PATIENT
  Sex: Female

DRUGS (5)
  1. ENBREL [Suspect]
     Active Substance: ETANERCEPT
     Indication: RHEUMATOID ARTHRITIS
     Dosage: 50 MG, QWK ON WEDNESDAYS
     Route: 065
     Dates: start: 2007
  2. CORTISONE [Concomitant]
     Active Substance: CORTISONE\HYDROCORTISONE
     Indication: RHEUMATOID ARTHRITIS
     Dosage: UNK
  3. METHOTREXATE. [Concomitant]
     Active Substance: METHOTREXATE
     Indication: RHEUMATOID ARTHRITIS
     Dosage: UNK
  4. DICLOFENAC [Concomitant]
     Active Substance: DICLOFENAC
     Indication: RHEUMATOID ARTHRITIS
     Dosage: UNK
  5. ENBREL [Suspect]
     Active Substance: ETANERCEPT
     Dosage: 50 MG, QWK ON WEDNESDAYS
     Route: 065

REACTIONS (17)
  - Feeling abnormal [Unknown]
  - Infection [Unknown]
  - Fungal infection [Unknown]
  - Anxiety [Unknown]
  - Dry eye [Unknown]
  - Pharyngitis [Unknown]
  - Ear infection [Unknown]
  - Injection site discolouration [Unknown]
  - Arthralgia [Unknown]
  - Dry mouth [Unknown]
  - Incorrect product storage [Unknown]
  - Drug dose omission [Unknown]
  - Tooth disorder [Unknown]
  - Tooth extraction [Unknown]
  - Scar [Unknown]
  - Pain [Unknown]
  - Influenza [Unknown]

NARRATIVE: CASE EVENT DATE: 2014
